FAERS Safety Report 6219176-9 (Version None)
Quarter: 2009Q2

REPORT INFORMATION
  Report Type: 
  Country: None (occurrence: None)
  Receive Date: 20090605
  Receipt Date: 20090605
  Transmission Date: 20091009
  Serious: Yes (Other)
  Sender: FDA-Public Use
  Company Number: None

PATIENT
  Age: 23 Year
  Sex: Female
  Weight: 52.1637 kg

DRUGS (1)
  1. OCELLA 28 TAB PACK BAYER [Suspect]
     Indication: CONTRACEPTION
     Dosage: 1 PILL 1X DAILY PO
     Route: 048
     Dates: start: 20080730, end: 20080917

REACTIONS (5)
  - CRYING [None]
  - DEPRESSION [None]
  - FRUSTRATION [None]
  - LETHARGY [None]
  - MOOD SWINGS [None]
